FAERS Safety Report 7230280-9 (Version None)
Quarter: 2011Q1

REPORT INFORMATION
  Report Type: 
  Country: None (occurrence: None)
  Receive Date: 20110118
  Receipt Date: 20110106
  Transmission Date: 20110831
  Serious: Yes (Other)
  Sender: FDA-Public Use
  Company Number: US-PFIZER INC-2010133126

PATIENT
  Sex: Male

DRUGS (6)
  1. DILTIAZEM [Concomitant]
     Indication: CARDIAC DISORDER
     Dosage: UNK
     Dates: start: 20080101, end: 20100101
  2. CUMADIN [Concomitant]
     Indication: ANTICOAGULANT THERAPY
     Dosage: UNK
     Dates: start: 20090201, end: 20090701
  3. CHANTIX [Suspect]
     Indication: SMOKING CESSATION THERAPY
     Dosage: UNK
     Dates: start: 20081218, end: 20090326
  4. LOVENOX [Concomitant]
     Indication: ANTICOAGULANT THERAPY
     Dosage: UNK
     Dates: start: 20090201, end: 20090201
  5. ZANTAC [Concomitant]
     Indication: DYSPEPSIA
     Dosage: UNK
     Dates: start: 20080101, end: 20100101
  6. CLARADIN [Concomitant]
     Indication: HYPERSENSITIVITY
     Dosage: UNK
     Dates: start: 20080101, end: 20100101

REACTIONS (5)
  - AGGRESSION [None]
  - SUICIDAL IDEATION [None]
  - ABNORMAL DREAMS [None]
  - DEPRESSION [None]
  - ANXIETY [None]
